FAERS Safety Report 15476013 (Version 9)
Quarter: 2020Q3

REPORT INFORMATION
  Report Type: Spontaneous
  Country: DE (occurrence: DE)
  Receive Date: 20181009
  Receipt Date: 20200928
  Transmission Date: 20201102
  Serious: Yes (Death, Hospitalization, Disabling, Other)
  Sender: FDA-Public Use
  Company Number: PHHY2018DE118384

PATIENT
  Sex: Male

DRUGS (6)
  1. CICLOSPORIN [Suspect]
     Active Substance: CYCLOSPORINE
     Indication: RENAL TRANSPLANT
     Dosage: UNK (MANUFACTURER: TEVA)
     Route: 048
  2. TOLVAPTAN [Interacting]
     Active Substance: TOLVAPTAN
     Indication: PRODUCT USED FOR UNKNOWN INDICATION
     Dosage: UNK
     Route: 065
  3. SANDIMMUN OPTORAL [Suspect]
     Active Substance: CYCLOSPORINE
     Indication: RENAL TRANSPLANT
     Dosage: 125 MG, QD (75 MG IN THE MORNING AND 50 MG IN THE EVENING)
     Route: 048
     Dates: start: 2007
  4. MYFORTIC [Suspect]
     Active Substance: MYCOPHENOLATE SODIUM
     Indication: RENAL TRANSPLANT
     Dosage: 360 MG, BID
     Route: 048
  5. CICLOSPORIN ? 1 A PHARMA [Suspect]
     Active Substance: CYCLOSPORINE
     Indication: PRODUCT USED FOR UNKNOWN INDICATION
     Dosage: UNK
     Route: 048
  6. PANTOPRAZOLE [Concomitant]
     Active Substance: PANTOPRAZOLE
     Indication: GASTRIC DISORDER
     Dosage: UNK
     Route: 048

REACTIONS (16)
  - Arterial occlusive disease [Unknown]
  - Fluid intake reduced [Unknown]
  - Wrong technique in product usage process [Unknown]
  - Necrosis [Fatal]
  - Renal failure [Fatal]
  - General physical health deterioration [Fatal]
  - Eating disorder [Unknown]
  - Encephalopathy [Unknown]
  - Therapeutic drug monitoring analysis not performed [Unknown]
  - Product administration error [Unknown]
  - Product substitution issue [Unknown]
  - Fluid retention [Fatal]
  - Stenosis [Unknown]
  - Drug interaction [Unknown]
  - Dehydration [Unknown]
  - Dysphagia [Unknown]
